FAERS Safety Report 8888961 (Version 1)
Quarter: 2012Q4

REPORT INFORMATION
  Report Type: 
  Country: US (occurrence: US)
  Receive Date: 20121106
  Receipt Date: 20121106
  Transmission Date: 20130627
  Serious: No
  Sender: FDA-Public Use
  Company Number: US-ASTRAZENECA-2012SE81045

PATIENT
  Sex: Female

DRUGS (4)
  1. ZOMIG-ZMT [Suspect]
     Indication: HEADACHE
     Route: 048
  2. ZOMIG-ZMT [Suspect]
     Indication: MIGRAINE
     Route: 048
  3. ZOMIG-ZMT [Suspect]
     Indication: HEADACHE
     Route: 048
  4. ZOMIG-ZMT [Suspect]
     Indication: MIGRAINE
     Route: 048

REACTIONS (3)
  - Drug ineffective [Unknown]
  - Migraine [Unknown]
  - Drug prescribing error [Unknown]
